FAERS Safety Report 16274599 (Version 2)
Quarter: 2019Q2

REPORT INFORMATION
  Report Type: Spontaneous
  Country: US (occurrence: US)
  Receive Date: 20190506
  Receipt Date: 20190610
  Transmission Date: 20190711
  Serious: No
  Sender: FDA-Public Use
  Company Number: US-AMGEN-USASP2019069606

PATIENT
  Age: 61 Year
  Sex: Female
  Weight: 81.5 kg

DRUGS (2)
  1. KYPROLIS [Suspect]
     Active Substance: CARFILZOMIB
     Indication: PRODUCT USED FOR UNKNOWN INDICATION
     Dosage: 111 UNK
     Route: 042
     Dates: start: 20190430
  2. KYPROLIS [Suspect]
     Active Substance: CARFILZOMIB
     Dosage: 111 MILLIGRAM
     Route: 042

REACTIONS (1)
  - Intercepted product preparation error [Unknown]

NARRATIVE: CASE EVENT DATE: 20190430
